FAERS Safety Report 9988232 (Version 2)
Quarter: 2014Q1

REPORT INFORMATION
  Report Type: Spontaneous
  Country: FR (occurrence: FR)
  Receive Date: 20140309
  Receipt Date: 20140309
  Transmission Date: 20141002
  Serious: Yes (Hospitalization)
  Sender: FDA-Public Use
  Company Number: FR-ROCHE-1299736

PATIENT
  Age: 84 Year
  Sex: Female

DRUGS (7)
  1. ROCEPHINE [Suspect]
     Indication: ERYSIPELAS
     Route: 065
     Dates: start: 20130811, end: 20130817
  2. PYOSTACINE [Suspect]
     Indication: ERYSIPELAS
     Route: 048
     Dates: start: 20130807, end: 20130811
  3. ZELITREX [Concomitant]
     Indication: OPHTHALMIC HERPES ZOSTER
     Route: 048
     Dates: start: 201307, end: 20130820
  4. KARDEGIC [Concomitant]
     Route: 048
     Dates: start: 201307
  5. LEVOTHYROX [Concomitant]
     Route: 048
  6. TAREG [Concomitant]
     Route: 048
     Dates: end: 201307
  7. TOBRADEX [Concomitant]
     Route: 047

REACTIONS (3)
  - Dermatitis exfoliative [Recovered/Resolved]
  - Dermatitis bullous [Recovered/Resolved]
  - Purpura [Recovered/Resolved]
